FAERS Safety Report 13870090 (Version 2)
Quarter: 2017Q3

REPORT INFORMATION
  Report Type: Spontaneous
  Country: US (occurrence: US)
  Receive Date: 20170815
  Receipt Date: 20170817
  Transmission Date: 20171127
  Serious: Yes (Other)
  Sender: FDA-Public Use
  Company Number: US-TEVA-797177USA

PATIENT
  Sex: Female

DRUGS (1)
  1. CELECOXIB. [Suspect]
     Active Substance: CELECOXIB
     Dosage: 100 MILLIGRAM DAILY;
     Route: 048
     Dates: start: 20170807, end: 20170807

REACTIONS (5)
  - Facial paralysis [Unknown]
  - Hypoaesthesia oral [Unknown]
  - Dysgeusia [Recovered/Resolved]
  - Swollen tongue [Unknown]
  - Facial asymmetry [Unknown]

NARRATIVE: CASE EVENT DATE: 20170807
